FAERS Safety Report 5914921-1 (Version None)
Quarter: 2008Q4

REPORT INFORMATION
  Report Type: 
  Country: None (occurrence: None)
  Receive Date: 20081010
  Receipt Date: 20081001
  Transmission Date: 20090506
  Serious: Yes (Other)
  Sender: FDA-Public Use
  Company Number: US-ELI_LILLY_AND_COMPANY-US200810000557

PATIENT
  Sex: Male

DRUGS (2)
  1. CIALIS [Suspect]
     Indication: ERECTILE DYSFUNCTION
     Dosage: 10 MG, EACH EVENING
     Dates: start: 20071010, end: 20080805
  2. ACYCLOVIR SODIUM [Concomitant]
     Indication: PROPHYLAXIS
     Dosage: 400 MG, DAILY (1/D)
     Dates: start: 20020701

REACTIONS (6)
  - HAEMATOCRIT DECREASED [None]
  - HAEMOGLOBIN DECREASED [None]
  - PRESYNCOPE [None]
  - RED BLOOD CELL COUNT DECREASED [None]
  - ROAD TRAFFIC ACCIDENT [None]
  - SYNCOPE [None]
